FAERS Safety Report 4859957-7 (Version None)
Quarter: 2005Q4

REPORT INFORMATION
  Report Type: 
  Country: None (occurrence: None)
  Receive Date: 20051219
  Receipt Date: 20051207
  Transmission Date: 20060501
  Serious: Yes (Hospitalization)
  Sender: FDA-Public Use
  Company Number: FR-BRISTOL-MYERS SQUIBB COMPANY-13218995

PATIENT
  Age: 71 Year
  Sex: Male
  Weight: 48 kg

DRUGS (4)
  1. ENDOXAN [Suspect]
     Indication: HAEMORRHAGIC DISORDER
     Route: 042
     Dates: start: 20050101
  2. SOLU-MEDROL [Suspect]
     Indication: HAEMORRHAGIC DISORDER
     Route: 042
     Dates: start: 20050101
  3. FEIBA [Concomitant]
     Dates: start: 20050101
  4. IMMUNE GLOBULIN INTRAVENOUS (HUMAN) [Concomitant]
     Dates: start: 20050101

REACTIONS (4)
  - ENTEROBACTER PNEUMONIA [None]
  - LUNG INFECTION PSEUDOMONAL [None]
  - OESOPHAGEAL CANDIDIASIS [None]
  - ORAL CANDIDIASIS [None]
